FAERS Safety Report 11324277 (Version 3)
Quarter: 2015Q3

REPORT INFORMATION
  Report Type: Spontaneous
  Country: CN (occurrence: CN)
  Receive Date: 20150730
  Receipt Date: 20150807
  Transmission Date: 20151125
  Serious: Yes (Death)
  Sender: FDA-Public Use
  Company Number: CN-BRISTOL-MYERS SQUIBB COMPANY-BMS-2015-045662

PATIENT
  Sex: Male

DRUGS (3)
  1. ERBITUX [Suspect]
     Active Substance: CETUXIMAB
     Dosage: 300 MG/M2, QWK
     Route: 042
  2. NEDAPLATIN [Concomitant]
     Active Substance: NEDAPLATIN
     Indication: LARYNGEAL CANCER
     Dosage: 40 MG/M2, QWK
     Route: 042
  3. ERBITUX [Suspect]
     Active Substance: CETUXIMAB
     Indication: LARYNGEAL CANCER
     Dosage: 500 MG/M2, QWK
     Route: 042
     Dates: start: 20140427

REACTIONS (3)
  - Off label use [Unknown]
  - Respiratory failure [Fatal]
  - Pneumonia [Fatal]
